FAERS Safety Report 6383614-1 (Version None)
Quarter: 2009Q4

REPORT INFORMATION
  Report Type: 
  Country: None (occurrence: None)
  Receive Date: 20091001
  Receipt Date: 20090922
  Transmission Date: 20100525
  Serious: Yes (Other)
  Sender: FDA-Public Use
  Company Number: CN-ASTRAZENECA-2009SE14807

PATIENT
  Sex: Male

DRUGS (2)
  1. LOSEC MUPS [Suspect]
     Route: 048
     Dates: start: 20090921
  2. CHINESE MEDICINE [Concomitant]
     Indication: HAEMOSTASIS

REACTIONS (1)
  - SHOCK [None]
